FAERS Safety Report 7969009-5 (Version None)
Quarter: 2011Q4

REPORT INFORMATION
  Report Type: 
  Country: None (occurrence: None)
  Receive Date: 20111209
  Receipt Date: 20111121
  Transmission Date: 20120403
  Serious: Yes (Death, Hospitalization)
  Sender: FDA-Public Use
  Company Number: PHHO2010ZA14425

PATIENT
  Sex: Female
  Weight: 78.3 kg

DRUGS (13)
  1. BLINDED NO TREATMENT RECEIVED [Suspect]
     Indication: BREAST CANCER METASTATIC
     Dosage: CODE NOT BROKEN
     Route: 048
     Dates: start: 20100630, end: 20100714
  2. BLINDED NO TREATMENT RECEIVED [Suspect]
     Dosage: CODE NOT BROKEN
     Route: 048
     Dates: start: 20100804, end: 20100919
  3. METFORMIN HCL [Concomitant]
     Indication: TYPE 2 DIABETES MELLITUS
     Dosage: UNK
     Dates: start: 20100630
  4. AFINITOR [Suspect]
     Indication: BREAST CANCER METASTATIC
     Dosage: CODE NOT BROKEN
     Route: 048
     Dates: start: 20100630, end: 20100714
  5. AFINITOR [Suspect]
     Dosage: CODE NOT BROKEN
     Route: 048
     Dates: start: 20100804, end: 20100919
  6. BLINDED PLACEBO [Suspect]
     Dosage: CODE NOT BROKEN
     Route: 048
     Dates: start: 20100804, end: 20100919
  7. POTASSIUM CHLORIDE [Concomitant]
     Indication: HYPOKALAEMIA
     Dosage: UNK
     Dates: start: 20100818
  8. BLINDED PLACEBO [Suspect]
     Indication: BREAST CANCER METASTATIC
     Dosage: CODE NOT BROKEN
     Route: 048
     Dates: start: 20100630, end: 20100714
  9. COMPARATOR TRASTUZUMAB [Suspect]
     Indication: BREAST CANCER METASTATIC
     Dosage: 2 MG/KG WEEKLY
     Route: 042
     Dates: start: 20100630, end: 20100907
  10. PREDNISONE [Concomitant]
     Dosage: UNK
     Dates: start: 20100622
  11. PACLITAXEL [Suspect]
     Dosage: 60 MG/M2 WEEKLY
     Route: 042
     Dates: start: 20100804, end: 20100919
  12. PACLITAXEL [Suspect]
     Indication: BREAST CANCER METASTATIC
     Dosage: 80 MG/M2 WEEKLY
     Route: 042
     Dates: start: 20100630, end: 20100714
  13. HYDROCHLOROTHIAZIDE [Concomitant]
     Indication: HYPERTENSION

REACTIONS (16)
  - PLEURAL EFFUSION [None]
  - OEDEMA PERIPHERAL [None]
  - DISSEMINATED INTRAVASCULAR COAGULATION [None]
  - RESPIRATORY ARREST [None]
  - GASTROINTESTINAL HAEMORRHAGE [None]
  - DYSPNOEA [None]
  - PAIN [None]
  - COLD SWEAT [None]
  - SEPSIS [None]
  - VENTRICULAR TACHYCARDIA [None]
  - EJECTION FRACTION DECREASED [None]
  - PNEUMONIA STREPTOCOCCAL [None]
  - LUNG CONSOLIDATION [None]
  - PALLOR [None]
  - CARDIAC FAILURE CONGESTIVE [None]
  - DEHYDRATION [None]
